FAERS Safety Report 13368170 (Version 19)
Quarter: 2021Q3

REPORT INFORMATION
  Report Type: Report from Study
  Country: None (occurrence: NL)
  Receive Date: 20170324
  Receipt Date: 20210910
  Transmission Date: 20211014
  Serious: Yes (Other)
  Sender: FDA-Public Use
  Company Number: NL-ABBVIE-17K-114-1919993-00

PATIENT
  Age: 66 Year
  Sex: Male
  Weight: 75 kg

DRUGS (18)
  1. DUODOPA [Suspect]
     Active Substance: CARBIDOPA\LEVODOPA
     Dosage: CONTINUOUS DOSE 4.1ML
     Route: 050
  2. DUODOPA [Suspect]
     Active Substance: CARBIDOPA\LEVODOPA
     Dosage: MD: 5ML, CD: 3.2ML/H, ED: 1.4ML, CND: 2.9ML/H, END: 1.4ML
     Route: 050
  3. DUODOPA [Suspect]
     Active Substance: CARBIDOPA\LEVODOPA
     Dosage: MD 5.0 ML; CD 3.6 ML/H; ED 2.0 ML
     Route: 050
  4. DUODOPA [Suspect]
     Active Substance: CARBIDOPA\LEVODOPA
     Dosage: MORNING DOSE: 9.5 ML, CONTINUOUS DOSE 4.6ML, EXTRA DOSE: 1ML.
     Route: 050
  5. DUODOPA [Suspect]
     Active Substance: CARBIDOPA\LEVODOPA
     Dosage: MD: 3 CD: 2.9 ED: 1.4 DOSE DECREASED
     Route: 050
  6. DUODOPA [Suspect]
     Active Substance: CARBIDOPA\LEVODOPA
     Dosage: MD 5.0 ML; CD 3.6 ML/H; ED 2.0 ML
     Route: 050
  7. DUODOPA [Suspect]
     Active Substance: CARBIDOPA\LEVODOPA
     Dosage: CDD 4.3
     Route: 050
  8. DUODOPA [Suspect]
     Active Substance: CARBIDOPA\LEVODOPA
     Indication: PARKINSON^S DISEASE
     Dosage: MD 9.5, CD3.9, ED 1.0
     Route: 050
     Dates: start: 20160404
  9. DUODOPA [Suspect]
     Active Substance: CARBIDOPA\LEVODOPA
     Dosage: MD: 9.5, CD: 3.7, ED: 1.5
     Route: 050
  10. DUODOPA [Suspect]
     Active Substance: CARBIDOPA\LEVODOPA
     Dosage: MD: 3, CD: 2.9, ED: 1.4, CND: 2.9, END: 1.4; 24 HOUR ADMINISTRATION
     Route: 050
  11. DUODOPA [Suspect]
     Active Substance: CARBIDOPA\LEVODOPA
     Dosage: MD 3.0?CD 3.5?ED 1.5
     Route: 050
  12. DUODOPA [Suspect]
     Active Substance: CARBIDOPA\LEVODOPA
     Dosage: MD: 10.5, CD: 3.5, ED: 1.5
     Route: 050
  13. DUODOPA [Suspect]
     Active Substance: CARBIDOPA\LEVODOPA
     Dosage: CD: 3.4 ML/H
     Route: 050
  14. DUODOPA [Suspect]
     Active Substance: CARBIDOPA\LEVODOPA
     Dosage: MD: 5ML, CD: 3.2ML/H, ED: 1.4ML, CND: 2.9ML/H, END: 1.4ML.
     Route: 050
  15. DUODOPA [Suspect]
     Active Substance: CARBIDOPA\LEVODOPA
     Dosage: MD 5.0 ML; ED 3.2 ML/H; ED 1.4 ML
     Route: 050
  16. DUODOPA [Suspect]
     Active Substance: CARBIDOPA\LEVODOPA
     Dosage: CD: 3.4 ML/H
     Route: 050
  17. DUODOPA [Suspect]
     Active Substance: CARBIDOPA\LEVODOPA
     Dosage: MD: 5.0 ML; CD: 3.4 ML/H; ED: 2.0 ML;20 MG/ML 5 MG/ML
     Route: 050
  18. SYMMETREL [Concomitant]
     Active Substance: AMANTADINE HYDROCHLORIDE
     Indication: PRODUCT USED FOR UNKNOWN INDICATION

REACTIONS (40)
  - Peripheral coldness [Not Recovered/Not Resolved]
  - General physical health deterioration [Not Recovered/Not Resolved]
  - Parkinson^s disease [Not Recovered/Not Resolved]
  - Musculoskeletal stiffness [Not Recovered/Not Resolved]
  - On and off phenomenon [Not Recovered/Not Resolved]
  - Impaired quality of life [Unknown]
  - Unevaluable event [Not Recovered/Not Resolved]
  - Hallucination [Recovered/Resolved]
  - Hypotension [Not Recovered/Not Resolved]
  - Freezing phenomenon [Not Recovered/Not Resolved]
  - Device alarm issue [Unknown]
  - Device issue [Unknown]
  - Speech disorder [Not Recovered/Not Resolved]
  - Dyskinesia [Recovered/Resolved]
  - Feeling abnormal [Not Recovered/Not Resolved]
  - Hypersexuality [Recovered/Resolved]
  - Paraesthesia [Not Recovered/Not Resolved]
  - Renal cancer [Not Recovered/Not Resolved]
  - Polyneuropathy [Not Recovered/Not Resolved]
  - Gait disturbance [Not Recovered/Not Resolved]
  - Dependent personality disorder [Not Recovered/Not Resolved]
  - Obsessive-compulsive disorder [Recovering/Resolving]
  - Fall [Unknown]
  - Hyperkinesia [Not Recovered/Not Resolved]
  - Therapeutic product effect incomplete [Recovered/Resolved]
  - Cognitive disorder [Not Recovered/Not Resolved]
  - Dizziness [Not Recovered/Not Resolved]
  - Drug ineffective [Unknown]
  - Device physical property issue [Unknown]
  - Somnolence [Not Recovered/Not Resolved]
  - Fall [Recovering/Resolving]
  - Weight fluctuation [Recovered/Resolved]
  - Skin irritation [Unknown]
  - Impulse-control disorder [Recovering/Resolving]
  - Unevaluable event [Recovered/Resolved]
  - Abnormal dreams [Not Recovered/Not Resolved]
  - Bradyphrenia [Not Recovered/Not Resolved]
  - Paranoia [Not Recovered/Not Resolved]
  - Stoma site haemorrhage [Recovered/Resolved]
  - Device breakage [Unknown]

NARRATIVE: CASE EVENT DATE: 20170228
